FAERS Safety Report 8640272 (Version 2)
Quarter: 2013Q2

REPORT INFORMATION
  Report Type: Report from Study
  Country: US (occurrence: US)
  Receive Date: 20120628
  Receipt Date: 20130627
  Transmission Date: 20140414
  Serious: Yes (Other)
  Sender: FDA-Public Use
  Company Number: US-MYLANLABS-2012S1004051

PATIENT
  Age: 79 Year
  Sex: Female

DRUGS (13)
  1. CLOZAPINE TABLETS [Suspect]
     Indication: BEHAVIOURAL AND PSYCHIATRIC SYMPTOMS OF DEMENTIA
     Route: 048
     Dates: start: 20110928, end: 20120323
  2. CLOZAPINE TABLETS [Suspect]
     Indication: BEHAVIOURAL AND PSYCHIATRIC SYMPTOMS OF DEMENTIA
     Route: 048
     Dates: start: 201203, end: 201205
  3. CLOZAPINE TABLETS [Suspect]
     Indication: BEHAVIOURAL AND PSYCHIATRIC SYMPTOMS OF DEMENTIA
     Route: 048
     Dates: start: 201205
  4. LEVOTHYROXINE [Concomitant]
     Indication: HYPOTHYROIDISM
  5. CLONAZEPAM [Concomitant]
     Indication: ANXIETY
  6. CYMBALTA [Concomitant]
     Indication: DEPRESSION
  7. PROTONIX [Concomitant]
     Indication: GASTROOESOPHAGEAL REFLUX DISEASE
  8. SINEMET [Concomitant]
     Dosage: 25MG/100MG
  9. IRON SULFATE [Concomitant]
  10. PROCRIT [Concomitant]
     Route: 058
  11. APAP [Concomitant]
  12. VITAMIN D [Concomitant]
  13. CALCIUM GLUCONATE W/VITAMIN D [Concomitant]

REACTIONS (1)
  - Granulocytopenia [Not Recovered/Not Resolved]
